FAERS Safety Report 17680345 (Version 4)
Quarter: 2020Q3

REPORT INFORMATION
  Report Type: Spontaneous
  Country: BR (occurrence: BR)
  Receive Date: 20200417
  Receipt Date: 20200826
  Transmission Date: 20201102
  Serious: Yes (Hospitalization)
  Sender: FDA-Public Use
  Company Number: BR-SHIRE-BR202013499

PATIENT

DRUGS (4)
  1. MESACOL MMX [Suspect]
     Active Substance: MESALAMINE
     Indication: COLITIS ULCERATIVE
     Dosage: 3200 MILLIGRAM, 1X/DAY:QD
     Route: 048
     Dates: start: 20200130
  2. MESACOL MMX [Suspect]
     Active Substance: MESALAMINE
     Dosage: 1200 MILLIGRAM, 3X/DAY:TID
     Route: 048
     Dates: start: 202004, end: 202006
  3. MESACOL MMX [Suspect]
     Active Substance: MESALAMINE
     Dosage: 800 MILLIGRAM, 3X/DAY:TID
     Route: 048
     Dates: start: 202006
  4. MESACOL MMX [Suspect]
     Active Substance: MESALAMINE
     Dosage: 250 MILLIGRAM
     Route: 054
     Dates: start: 202006

REACTIONS (10)
  - Anaemia [Recovered/Resolved]
  - Abnormal faeces [Unknown]
  - Wrong schedule [Unknown]
  - Tachycardia [Unknown]
  - Product residue present [Recovered/Resolved]
  - Pruritus [Unknown]
  - Rash [Unknown]
  - Vomiting [Unknown]
  - Faeces hard [Unknown]
  - Retching [Unknown]

NARRATIVE: CASE EVENT DATE: 200202
